FAERS Safety Report 4501605-X (Version None)
Quarter: 2004Q3

REPORT INFORMATION
  Report Type: 
  Country: None (occurrence: None)
  Receive Date: 20040928
  Receipt Date: 20040831
  Transmission Date: 20050211
  Serious: No
  Sender: FDA-Public Use
  Company Number: 04P-163-0271944-00

PATIENT
  Age: 32 Year
  Sex: Female
  Weight: 65.7716 kg

DRUGS (9)
  1. HUMIRA [Suspect]
     Indication: RHEUMATOID ARTHRITIS
     Dosage: 40 MG, 1 IN 2 WK, SUBCUTANEOUS
     Route: 058
     Dates: start: 20040501
  2. ATENOLOL [Concomitant]
  3. COUMADIN [Concomitant]
  4. METHOTREXATE [Concomitant]
  5. PREDNISONE [Concomitant]
  6. FOLIC ACID [Concomitant]
  7. VICODIN [Concomitant]
  8. FLUOXETINE HYDROCHLORIDE [Concomitant]
  9. CLONAZEPAM [Concomitant]

REACTIONS (3)
  - DYSGEUSIA [None]
  - INJECTION SITE HAEMORRHAGE [None]
  - INJECTION SITE RASH [None]
